FAERS Safety Report 17101178 (Version 4)
Quarter: 2020Q1

REPORT INFORMATION
  Report Type: Report from Study
  Country: US (occurrence: US)
  Receive Date: 20191202
  Receipt Date: 20200303
  Transmission Date: 20200409
  Serious: Yes (Hospitalization, Other)
  Sender: FDA-Public Use
  Company Number: US-ACTELION-A-NJ2019-198590

PATIENT
  Age: 63 Year
  Sex: Male

DRUGS (4)
  1. CIPROFLOXACIN. [Concomitant]
     Active Substance: CIPROFLOXACIN
     Dosage: UNK
     Dates: start: 20200211
  2. ADEMPAS [Concomitant]
     Active Substance: RIOCIGUAT
  3. TAMSULOSIN [Concomitant]
     Active Substance: TAMSULOSIN
     Dosage: UNK
     Dates: start: 20200211
  4. OPSUMIT [Suspect]
     Active Substance: MACITENTAN
     Indication: PULMONARY ARTERIAL HYPERTENSION
     Dosage: 10 MG, QD
     Route: 048
     Dates: start: 20180604

REACTIONS (26)
  - Cardiac failure [Recovered/Resolved]
  - Blood creatinine increased [Recovered/Resolved]
  - Bacteraemia [Unknown]
  - Fatigue [Unknown]
  - Melaena [Recovered/Resolved]
  - Oedema peripheral [Not Recovered/Not Resolved]
  - Hyperkalaemia [Recovered/Resolved]
  - Chills [Recovered/Resolved]
  - Nausea [Recovered/Resolved]
  - Vomiting [Recovered/Resolved]
  - Pain [Recovered/Resolved]
  - Toxicity to various agents [Recovered/Resolved]
  - Arthralgia [Unknown]
  - Urinary retention [Not Recovered/Not Resolved]
  - Peripheral swelling [Unknown]
  - Oliguria [Recovered/Resolved]
  - Back pain [Unknown]
  - N-terminal prohormone brain natriuretic peptide increased [Recovered/Resolved]
  - Aspartate aminotransferase increased [Recovered/Resolved]
  - Chromaturia [Recovered/Resolved]
  - Urine odour abnormal [Recovered/Resolved]
  - Pyrexia [Recovered/Resolved]
  - Renal transplant [Recovered/Resolved]
  - Acute kidney injury [Recovered/Resolved]
  - Dyspnoea [Not Recovered/Not Resolved]
  - Blood glucose increased [Unknown]

NARRATIVE: CASE EVENT DATE: 201903
